FAERS Safety Report 10754583 (Version 5)
Quarter: 2015Q2

REPORT INFORMATION
  Report Type: Spontaneous
  Country: DE (occurrence: DE)
  Receive Date: 20150202
  Receipt Date: 20150408
  Transmission Date: 20150821
  Serious: Yes (Hospitalization)
  Sender: FDA-Public Use
  Company Number: DE-JNJFOC-20150112680

PATIENT
  Age: 54 Year
  Sex: Female
  Weight: 96 kg

DRUGS (11)
  1. FOLIC ACID. [Concomitant]
     Active Substance: FOLIC ACID
     Route: 065
  2. DEKRISTOL [Concomitant]
     Active Substance: CHOLECALCIFEROL
     Route: 065
  3. STELARA [Suspect]
     Active Substance: USTEKINUMAB
     Indication: PSORIATIC ARTHROPATHY
     Route: 058
     Dates: start: 20140530
  4. STELARA [Suspect]
     Active Substance: USTEKINUMAB
     Indication: PSORIATIC ARTHROPATHY
     Route: 058
     Dates: start: 20140502
  5. METHOTREXATE [Concomitant]
     Active Substance: METHOTREXATE
     Dosage: ON SUNDAY
     Route: 065
     Dates: start: 2014, end: 20140727
  6. STELARA [Suspect]
     Active Substance: USTEKINUMAB
     Indication: PSORIATIC ARTHROPATHY
     Route: 058
     Dates: start: 20140830
  7. L-THYROXINE [Concomitant]
     Active Substance: LEVOTHYROXINE
     Dosage: 75 MCG/150 MCG
     Route: 065
  8. STELARA [Suspect]
     Active Substance: USTEKINUMAB
     Indication: PSORIATIC ARTHROPATHY
     Route: 058
     Dates: start: 20141123
  9. AMLODIPINE [Concomitant]
     Active Substance: AMLODIPINE BESYLATE
     Route: 065
  10. ARCOXIA [Concomitant]
     Active Substance: ETORICOXIB
     Dosage: 60 MG TO 90 MG
     Route: 065
  11. AMITRIPTYLINE [Concomitant]
     Active Substance: AMITRIPTYLINE
     Route: 065

REACTIONS (15)
  - Tooth disorder [Recovered/Resolved]
  - Feeling abnormal [Recovered/Resolved]
  - Cerebral ischaemia [Recovering/Resolving]
  - Dizziness [Unknown]
  - Alopecia [Recovered/Resolved]
  - Disturbance in attention [Unknown]
  - Arthritis [Unknown]
  - Musculoskeletal stiffness [Unknown]
  - Madarosis [Unknown]
  - Fatigue [Unknown]
  - Burning sensation [Unknown]
  - Cardiovascular disorder [Unknown]
  - Diarrhoea [Unknown]
  - Cerebrovascular accident [Recovered/Resolved]
  - Speech disorder [Unknown]

NARRATIVE: CASE EVENT DATE: 20140502
